FAERS Safety Report 9802308 (Version 6)
Quarter: 2014Q1

REPORT INFORMATION
  Report Type: Spontaneous
  Country: US (occurrence: US)
  Receive Date: 20140107
  Receipt Date: 20140331
  Transmission Date: 20141002
  Serious: Yes (Death, Hospitalization, Other)
  Sender: FDA-Public Use
  Company Number: US-BAXTER-2014BAX000047

PATIENT
  Sex: Male

DRUGS (11)
  1. DIANEAL LOW CALCIUM [Suspect]
     Indication: PERITONEAL DIALYSIS
     Route: 033
     Dates: start: 201312, end: 20140122
  2. DIANEAL LOW CALCIUM [Suspect]
     Indication: RENAL FAILURE CHRONIC
     Route: 033
     Dates: start: 201210
  3. DIANEAL LOW CALCIUM [Suspect]
     Indication: PERITONEAL DIALYSIS
  4. DIANEAL LOW CALCIUM [Suspect]
     Indication: PERITONEAL DIALYSIS
     Route: 033
  5. DIANEAL PD2 [Suspect]
     Indication: RENAL FAILURE CHRONIC
     Route: 033
     Dates: start: 201210
  6. DIANEAL PD2 [Suspect]
     Indication: PERITONEAL DIALYSIS
  7. DIANEAL PD2 [Suspect]
     Indication: PERITONEAL DIALYSIS
     Route: 033
  8. DIANEAL PD2 [Suspect]
     Indication: PERITONEAL DIALYSIS
     Route: 033
  9. DIANEAL LOW CALCIUM (ULTRABAG) [Suspect]
     Indication: PERITONEAL DIALYSIS
     Route: 033
     Dates: start: 201312, end: 20140122
  10. KEPPRA [Concomitant]
     Indication: CONVULSION
  11. VIMPAT [Concomitant]
     Indication: CONVULSION

REACTIONS (8)
  - Respiratory arrest [Fatal]
  - Septic encephalopathy [Fatal]
  - Septic embolus [Fatal]
  - Fungal infection [Fatal]
  - Convulsion [Not Recovered/Not Resolved]
  - Lethargy [Unknown]
  - Mental status changes [Recovering/Resolving]
  - Chest pain [Unknown]
